FAERS Safety Report 7081186-X (Version None)
Quarter: 2010Q4

REPORT INFORMATION
  Report Type: 
  Country: None (occurrence: None)
  Receive Date: 20101103
  Receipt Date: 20101027
  Transmission Date: 20110411
  Serious: Yes (Other)
  Sender: FDA-Public Use
  Company Number: US-BAYER-201038840NA

PATIENT
  Sex: Female

DRUGS (1)
  1. AVELOX [Suspect]
     Indication: SINUSITIS
     Dosage: TOTAL DAILY DOSE: 400 MG  UNIT DOSE: 400 MG
     Route: 048
     Dates: start: 20101021

REACTIONS (10)
  - DISCOMFORT [None]
  - DISORIENTATION [None]
  - DYSGEUSIA [None]
  - HALLUCINATION [None]
  - INSOMNIA [None]
  - MALAISE [None]
  - MYALGIA [None]
  - PALPITATIONS [None]
  - THINKING ABNORMAL [None]
  - VOMITING [None]
